FAERS Safety Report 18372685 (Version 4)
Quarter: 2021Q3

REPORT INFORMATION
  Report Type: Spontaneous
  Country: US (occurrence: US)
  Receive Date: 20201012
  Receipt Date: 20210804
  Transmission Date: 20211014
  Serious: No
  Sender: FDA-Public Use
  Company Number: US-PFIZER INC-2020391608

PATIENT
  Age: 61 Year
  Sex: Male

DRUGS (1)
  1. XELJANZ XR [Suspect]
     Active Substance: TOFACITINIB CITRATE
     Indication: RHEUMATOID ARTHRITIS
     Dosage: 11 MG, DAILY
     Route: 048
     Dates: start: 20200906

REACTIONS (6)
  - Depressed mood [Unknown]
  - Product dose omission in error [Unknown]
  - Irritability [Unknown]
  - Pain in extremity [Unknown]
  - Drug ineffective [Unknown]
  - Discouragement [Unknown]

NARRATIVE: CASE EVENT DATE: 2020
